FAERS Safety Report 4299182-4 (Version None)
Quarter: 2004Q1

REPORT INFORMATION
  Report Type: 
  Country: None (occurrence: None)
  Receive Date: 20040217
  Receipt Date: 20040217
  Transmission Date: 20041129
  Serious: Yes (Hospitalization)
  Sender: FDA-Public Use
  Company Number: None

PATIENT
  Age: 11 Year
  Sex: Male
  Weight: 40.8237 kg

DRUGS (3)
  1. ABILIFY [Suspect]
     Indication: BIPOLAR DISORDER
     Dosage: 10 MG PO BID
     Route: 048
     Dates: start: 20040203, end: 20040205
  2. ADDERALL 10 [Concomitant]
  3. TRAZODONE HCL [Concomitant]

REACTIONS (8)
  - DIFFICULTY IN WALKING [None]
  - DYSPHAGIA [None]
  - LETHARGY [None]
  - MUSCLE RIGIDITY [None]
  - PARKINSON'S DISEASE [None]
  - STUPOR [None]
  - TONGUE PARALYSIS [None]
  - TREMOR [None]
